FAERS Safety Report 20567124 (Version 1)
Quarter: 2022Q1

REPORT INFORMATION
  Report Type: Spontaneous
  Country: US (occurrence: US)
  Receive Date: 20220308
  Receipt Date: 20220308
  Transmission Date: 20220423
  Serious: No
  Sender: FDA-Public Use
  Company Number: US-PFIZER INC-202200291689

PATIENT
  Age: 81 Year
  Sex: Female
  Weight: 87.528 kg

DRUGS (1)
  1. PREGABALIN [Suspect]
     Active Substance: PREGABALIN
     Indication: Pain
     Dosage: UNK(1 IN AM, 1 AT NOON, 1 AT PM, 2 AT BEDTIME)
     Route: 048

REACTIONS (1)
  - Diarrhoea [Recovered/Resolved]
